FAERS Safety Report 9436047 (Version 4)
Quarter: 2014Q1

REPORT INFORMATION
  Report Type: Spontaneous
  Country: US (occurrence: US)
  Receive Date: 20130801
  Receipt Date: 20140117
  Transmission Date: 20141002
  Serious: Yes (Death, Hospitalization)
  Sender: FDA-Public Use
  Company Number: US-B.I. PHARMACEUTICALS,INC./RIDGEFIELD-2013-BI-22607BP

PATIENT
  Sex: Male
  Weight: 74.84 kg

DRUGS (21)
  1. PRADAXA [Suspect]
     Indication: ANTICOAGULANT THERAPY
     Dosage: 300 MG
     Route: 048
     Dates: start: 20110210, end: 20110214
  2. PRADAXA [Suspect]
     Dosage: 300 MG
     Route: 048
     Dates: start: 20110302, end: 20110422
  3. ACTOS [Concomitant]
     Dates: start: 2004, end: 2011
  4. ALLOPURINOL [Concomitant]
     Dates: start: 2004, end: 2011
  5. AMIODARONE [Concomitant]
     Dates: start: 2008, end: 2011
  6. AMLODIPINE [Concomitant]
  7. ASPIRIN [Concomitant]
  8. CENTRUM SILVER MULTIVITAMIN [Concomitant]
  9. COLCRYS [Concomitant]
  10. FERROUS SULFATE [Concomitant]
     Dates: start: 2004, end: 2011
  11. FINASTERIDE [Concomitant]
  12. FOLIC ACID [Concomitant]
     Dates: start: 2004, end: 2011
  13. FUROSEMIDE [Concomitant]
     Dates: start: 2004, end: 2011
  14. LEVAQUIN [Concomitant]
  15. LISINOPRIL [Concomitant]
     Dates: start: 2004, end: 2011
  16. POLYETHYLENE GLYCOL [Concomitant]
  17. RANEXA [Concomitant]
     Dates: start: 2010, end: 2011
  18. RIVASTIGMINE [Concomitant]
  19. SIMVASTATIN [Concomitant]
     Dates: start: 2009, end: 2011
  20. SINGULAIR [Concomitant]
     Dates: start: 2007, end: 2011
  21. TAMSULOSIN [Concomitant]

REACTIONS (1)
  - Gastrointestinal haemorrhage [Fatal]
